FAERS Safety Report 6409636-X (Version None)
Quarter: 2009Q4

REPORT INFORMATION
  Report Type: 
  Country: None (occurrence: None)
  Receive Date: 20091022
  Receipt Date: 20091013
  Transmission Date: 20100525
  Serious: Yes (Hospitalization, Other)
  Sender: FDA-Public Use
  Company Number: US-PFIZER INC-2006152214

PATIENT
  Sex: Female
  Weight: 66 kg

DRUGS (8)
  1. DEPO-PROVERA [Suspect]
     Indication: CONTRACEPTION
     Dosage: UNK
     Route: 030
     Dates: start: 19951201, end: 20030620
  2. PAXIL [Concomitant]
  3. VICODIN [Concomitant]
     Indication: PAIN
  4. PERCOCET [Concomitant]
     Indication: PAIN
  5. DARVOCET [Concomitant]
     Indication: PAIN
  6. TORADOL [Concomitant]
     Indication: PAIN
  7. CELEBREX [Concomitant]
     Indication: PAIN
  8. MOTRIN [Concomitant]
     Indication: PAIN
     Dosage: 800 MG, UNK

REACTIONS (4)
  - BODY HEIGHT DECREASED [None]
  - OSTEOPOROSIS [None]
  - OSTEOPOROTIC FRACTURE [None]
  - TOOTH FRACTURE [None]
